FAERS Safety Report 5312822-3 (Version None)
Quarter: 2007Q2

REPORT INFORMATION
  Report Type: 
  Country: None (occurrence: None)
  Receive Date: 20070424
  Receipt Date: 20070418
  Transmission Date: 20071010
  Serious: Yes (Hospitalization)
  Sender: FDA-Public Use
  Company Number: 155419USA

PATIENT
  Age: 19 Month
  Sex: Male

DRUGS (1)
  1. LAMOTRIGINE [Suspect]
     Dosage: ORAL
     Route: 048

REACTIONS (8)
  - ACCIDENTAL OVERDOSE [None]
  - BLOOD PRESSURE DECREASED [None]
  - CONVULSION [None]
  - CRYING [None]
  - EMOTIONAL DISTRESS [None]
  - IRRITABILITY [None]
  - SINUS TACHYCARDIA [None]
  - VOMITING [None]
